FAERS Safety Report 6647345-2 (Version None)
Quarter: 2010Q1

REPORT INFORMATION
  Report Type: 
  Country: None (occurrence: None)
  Receive Date: 20100323
  Receipt Date: 20100317
  Transmission Date: 20100710
  Serious: Yes (Hospitalization)
  Sender: FDA-Public Use
  Company Number: B0641403A

PATIENT
  Age: 61 Year
  Sex: Male

DRUGS (2)
  1. AMOXICILLIN [Suspect]
  2. ALLOPURINOL [Suspect]

REACTIONS (8)
  - DRUG RASH WITH EOSINOPHILIA AND SYSTEMIC SYMPTOMS [None]
  - EOSINOPHILIA [None]
  - HEPATITIS [None]
  - HISTIOCYTOSIS HAEMATOPHAGIC [None]
  - LYMPHOCYTOSIS [None]
  - PYREXIA [None]
  - RASH [None]
  - RENAL FAILURE [None]
